FAERS Safety Report 6093820-1 (Version None)
Quarter: 2009Q1

REPORT INFORMATION
  Report Type: 
  Country: None (occurrence: None)
  Receive Date: 20090223
  Receipt Date: 20090223
  Transmission Date: 20090719
  Serious: No
  Sender: FDA-Public Use
  Company Number: None

PATIENT
  Sex: Female
  Weight: 88.4514 kg

DRUGS (2)
  1. ZOLOFT [Suspect]
     Indication: BEREAVEMENT REACTION
     Dosage: 1-2 TABLETS DAILY PO
     Route: 048
  2. ZOLOFT [Suspect]
     Indication: DEATH OF RELATIVE
     Dosage: 1-2 TABLETS DAILY PO
     Route: 048

REACTIONS (9)
  - AGGRESSION [None]
  - DIZZINESS [None]
  - DRUG WITHDRAWAL SYNDROME [None]
  - DYSKINESIA [None]
  - HEADACHE [None]
  - IMPULSIVE BEHAVIOUR [None]
  - IRRITABILITY [None]
  - LOSS OF LIBIDO [None]
  - NAUSEA [None]
